FAERS Safety Report 9746758 (Version 1)
Quarter: 2013Q4

REPORT INFORMATION
  Report Type: Spontaneous
  Country: FI (occurrence: FI)
  Receive Date: 20131211
  Receipt Date: 20131211
  Transmission Date: 20140711
  Serious: Yes (Disabling)
  Sender: FDA-Public Use
  Company Number: FI-B.I. PHARMACEUTICALS,INC./RIDGEFIELD-2013-BI-40799SF

PATIENT
  Age: 79 Year
  Sex: Female

DRUGS (7)
  1. TRAJENTA [Suspect]
     Indication: TYPE 2 DIABETES MELLITUS
     Dosage: 5 MG
     Dates: start: 20130117, end: 20130923
  2. DIGOXIN SEMI [Concomitant]
     Dosage: 0.125 MG
  3. ISOPTIN RETARD [Concomitant]
     Dosage: 120 MG
  4. CARDACE [Concomitant]
     Dosage: 2.5 MG
  5. MAREVAN [Concomitant]
  6. LEVEMIR FLEXPEN [Concomitant]
     Dosage: 20-29 IU
  7. SOMAC [Concomitant]
     Dosage: 20 MG

REACTIONS (3)
  - Abdominal pain [Not Recovered/Not Resolved]
  - Abdominal discomfort [Not Recovered/Not Resolved]
  - Abdominal pain [Not Recovered/Not Resolved]
